FAERS Safety Report 9075539 (Version 1)
Quarter: 2013Q1

REPORT INFORMATION
  Report Type: Report from Study
  Country: US (occurrence: US)
  Receive Date: 20130131
  Receipt Date: 20130131
  Transmission Date: 20140127
  Serious: No
  Sender: FDA-Public Use
  Company Number: US-ABBOTT-12P-163-1006922-00

PATIENT
  Sex: Male

DRUGS (10)
  1. HUMIRA [Suspect]
     Indication: CROHN^S DISEASE
     Dates: start: 20120926
  2. HUMIRA [Suspect]
     Dosage: TOOK TWO DOSES AT 80 MG
  3. HUMIRA [Suspect]
     Route: 058
  4. ASACOL [Concomitant]
     Indication: CROHN^S DISEASE
  5. ADVAIR [Concomitant]
     Indication: ASTHMA
  6. MERCAPTOPURINE [Concomitant]
     Indication: CROHN^S DISEASE
  7. MULTIVITAMIN [Concomitant]
     Indication: VITAMIN SUPPLEMENTATION
  8. OMEPRAZOLE [Concomitant]
     Indication: CROHN^S DISEASE
  9. SERATALINE [Concomitant]
  10. VENTOLIN [Concomitant]
     Indication: ASTHMA

REACTIONS (1)
  - Incorrect dose administered [Not Recovered/Not Resolved]
